FAERS Safety Report 7370358-2 (Version None)
Quarter: 2011Q1

REPORT INFORMATION
  Report Type: 
  Country: None (occurrence: None)
  Receive Date: 20110323
  Receipt Date: 20110315
  Transmission Date: 20110831
  Serious: Yes (Other)
  Sender: FDA-Public Use
  Company Number: US-GENENTECH-315368

PATIENT
  Sex: Male

DRUGS (3)
  1. XOLAIR [Suspect]
     Dosage: UNK
     Dates: start: 20050101
  2. XOLAIR [Suspect]
     Dosage: UNK
     Dates: start: 20060101
  3. XOLAIR [Suspect]
     Indication: PRODUCT USED FOR UNKNOWN INDICATION
     Dosage: 375 UNK, UNK
     Dates: start: 20110101

REACTIONS (3)
  - DIZZINESS [None]
  - ABDOMINAL DISCOMFORT [None]
  - DYSPNOEA [None]
